APPROVED DRUG PRODUCT: CLINDAMYCIN HYDROCHLORIDE
Active Ingredient: CLINDAMYCIN HYDROCHLORIDE
Strength: EQ 300MG BASE
Dosage Form/Route: CAPSULE;ORAL
Application: A207402 | Product #003 | TE Code: AB
Applicant: MICRO LABS LTD
Approved: Nov 5, 2018 | RLD: No | RS: No | Type: RX